FAERS Safety Report 5528026-5 (Version None)
Quarter: 2007Q4

REPORT INFORMATION
  Report Type: 
  Country: None (occurrence: None)
  Receive Date: 20071113
  Receipt Date: 20070223
  Transmission Date: 20080405
  Serious: Yes (Other)
  Sender: FDA-Public Use
  Company Number: 2007-BP-02630BP

PATIENT
  Sex: Female

DRUGS (2)
  1. MICARDIS [Suspect]
     Dosage: 40 MG (40 MG,1 IN 1 D)
  2. ASPIRIN [Suspect]

REACTIONS (1)
  - ANGIOEDEMA [None]
